FAERS Safety Report 12743520 (Version 1)
Quarter: 2016Q3

REPORT INFORMATION
  Report Type: Report from Study
  Country: NL (occurrence: NL)
  Receive Date: 20160914
  Receipt Date: 20160914
  Transmission Date: 20161109
  Serious: Yes (Hospitalization, Other)
  Sender: FDA-Public Use
  Company Number: NL-AMGEN-NLDSL2016122080

PATIENT
  Age: 43 Year
  Sex: Female

DRUGS (1)
  1. NEULASTA [Suspect]
     Active Substance: PEGFILGRASTIM
     Indication: NEUTROPENIA
     Dosage: 0.6 ML, Q3WK
     Route: 058

REACTIONS (5)
  - Diarrhoea [Unknown]
  - Laryngitis [Unknown]
  - Leukopenia [Unknown]
  - Enteritis infectious [Unknown]
  - Oral fungal infection [Unknown]

NARRATIVE: CASE EVENT DATE: 20160822
